FAERS Safety Report 9962135 (Version 1)
Quarter: 2014Q1

REPORT INFORMATION
  Report Type: Spontaneous
  Country: US (occurrence: US)
  Receive Date: 20140305
  Receipt Date: 20140305
  Transmission Date: 20141002
  Serious: No
  Sender: FDA-Public Use
  Company Number: US-ABBVIE-13P-163-1115697-00

PATIENT
  Age: 31 Year
  Sex: Female
  Weight: 81.72 kg

DRUGS (4)
  1. HUMIRA [Suspect]
     Indication: PSORIASIS
     Dates: start: 201306
  2. HUMIRA [Suspect]
     Dates: start: 20130604, end: 20130604
  3. ZOLOFT [Concomitant]
     Indication: ANXIETY
  4. PROPRANOLOL [Concomitant]
     Indication: MIGRAINE

REACTIONS (3)
  - Injection site warmth [Not Recovered/Not Resolved]
  - Injection site swelling [Not Recovered/Not Resolved]
  - Injection site erythema [Not Recovered/Not Resolved]
